FAERS Safety Report 8487541-5 (Version None)
Quarter: 2012Q3

REPORT INFORMATION
  Report Type: 
  Country: None (occurrence: None)
  Receive Date: 20120705
  Receipt Date: 20120620
  Transmission Date: 20120928
  Serious: No
  Sender: FDA-Public Use
  Company Number: US-JNJFOC-20120611109

PATIENT
  Sex: Female
  Weight: 58.97 kg

DRUGS (11)
  1. FENTANYL-100 [Suspect]
     Indication: PAIN IN EXTREMITY
     Route: 062
     Dates: start: 20120616
  2. AMBIEN [Concomitant]
     Indication: SLEEP DISORDER
     Dosage: AT NIGHT
     Route: 048
  3. FUROSEMIDE [Concomitant]
     Indication: SWELLING
     Route: 048
  4. FENTANYL-100 [Suspect]
     Indication: SCIATICA
     Route: 062
     Dates: start: 20120616
  5. FENTANYL-100 [Suspect]
     Indication: ARTHRITIS
     Route: 062
     Dates: start: 20120616
  6. FENTANYL-100 [Suspect]
     Route: 062
     Dates: start: 20120616
  7. LISINOPRIL [Concomitant]
     Indication: HYPERTENSION
     Route: 048
  8. FENTANYL-100 [Suspect]
     Route: 062
     Dates: start: 20120616
  9. FENTANYL-100 [Suspect]
     Route: 062
     Dates: start: 20120616
  10. XANAX [Concomitant]
     Dosage: AFTER DAUGHTER'S DEATH
     Route: 048
  11. LASIX [Concomitant]
     Indication: FLUID RETENTION
     Route: 048

REACTIONS (6)
  - BLISTER [None]
  - RASH [None]
  - INAPPROPRIATE SCHEDULE OF DRUG ADMINISTRATION [None]
  - RASH GENERALISED [None]
  - PAIN [None]
  - GAIT DISTURBANCE [None]
